FAERS Safety Report 20553765 (Version 1)
Quarter: 2022Q1

REPORT INFORMATION
  Report Type: Spontaneous
  Country: US (occurrence: US)
  Receive Date: 20220304
  Receipt Date: 20220304
  Transmission Date: 20220424
  Serious: Yes (Life-Threatening, Hospitalization, Other)
  Sender: FDA-Public Use
  Company Number: US-UPSHER-SMITH LABORATORIES, LLC-2022USL00134

PATIENT
  Age: 17 Year
  Sex: Male

DRUGS (2)
  1. FLUVOXAMINE MALEATE [Suspect]
     Active Substance: FLUVOXAMINE MALEATE
     Indication: Suicide attempt
     Dosage: 32 MG/KG, ONCE
     Route: 065
  2. QUETIAPINE [Suspect]
     Active Substance: QUETIAPINE
     Indication: Suicide attempt
     Dosage: 130 MG/KG, ONCE
     Route: 065

REACTIONS (5)
  - Vasoplegia syndrome [Recovered/Resolved]
  - Suicide attempt [Recovered/Resolved]
  - Acute kidney injury [Recovered/Resolved]
  - Rhabdomyolysis [Recovered/Resolved]
  - Toxicity to various agents [Recovered/Resolved]
